FAERS Safety Report 17089767 (Version 1)
Quarter: 2019Q4

REPORT INFORMATION
  Report Type: Spontaneous
  Country: US (occurrence: US)
  Receive Date: 20191128
  Receipt Date: 20191128
  Transmission Date: 20200122
  Serious: Yes (Other)
  Sender: FDA-Public Use
  Company Number: US-BAXTER-2019BAX024278

PATIENT
  Sex: Female

DRUGS (1)
  1. STERILE WATER [Suspect]
     Active Substance: WATER
     Indication: WOUND TREATMENT
     Route: 061
     Dates: start: 20191011

REACTIONS (2)
  - Wound infection bacterial [Unknown]
  - Escherichia infection [Unknown]
